FAERS Safety Report 9758340 (Version 2)
Quarter: 2014Q2

REPORT INFORMATION
  Report Type: Spontaneous
  Country: US (occurrence: US)
  Receive Date: 20131216
  Receipt Date: 20140417
  Transmission Date: 20141212
  Serious: Yes (Hospitalization)
  Sender: FDA-Public Use
  Company Number: US-BEH-2013039453

PATIENT
  Age: 61 Year
  Sex: Female

DRUGS (19)
  1. HIZENTRA [Suspect]
  2. LETAIRIS [Suspect]
     Route: 048
  3. SYMBICORT [Concomitant]
  4. SPIRIVA HANDIHALER [Concomitant]
  5. ACETAMINOPHEN WITH HYDROCODONE [Concomitant]
  6. DALIRESP [Concomitant]
  7. XANAX [Concomitant]
  8. VENTOLIN [Concomitant]
  9. MUCINEX [Concomitant]
  10. PERCOCET [Concomitant]
  11. LEVOFLOXACIN [Concomitant]
  12. LOVASTATIN [Concomitant]
  13. FLEXERIL [Concomitant]
  14. ALBUTEROL [Concomitant]
  15. TAMIFLU [Concomitant]
  16. FLOMAX [Concomitant]
  17. ADVAIR [Concomitant]
  18. DUONEB [Concomitant]
  19. MEGACE [Concomitant]

REACTIONS (1)
  - Bronchitis [Unknown]
